FAERS Safety Report 6100607-X (Version None)
Quarter: 2009Q1

REPORT INFORMATION
  Report Type: 
  Country: None (occurrence: None)
  Receive Date: 20090303
  Receipt Date: 20090220
  Transmission Date: 20090719
  Serious: Yes (Other)
  Sender: FDA-Public Use
  Company Number: NZ-NOVOPROD-278808

PATIENT
  Age: 26 Year
  Sex: Female
  Weight: 69.3 kg

DRUGS (8)
  1. LEVEMIR [Suspect]
     Indication: TYPE 1 DIABETES MELLITUS
     Dosage: 23 U, QD
     Route: 058
     Dates: start: 20080616, end: 20080713
  2. NOVORAPID [Suspect]
     Indication: TYPE 1 DIABETES MELLITUS
     Dosage: 20 U, QD
     Route: 058
     Dates: start: 20031020
  3. NOVORAPID [Suspect]
  4. PROTAPHANE [Suspect]
     Indication: TYPE 1 DIABETES MELLITUS
     Dosage: 23 U, QD
     Route: 058
     Dates: start: 20031020
  5. INSULIN GLARGINE [Suspect]
     Indication: TYPE 1 DIABETES MELLITUS
     Dosage: 20 U, UNK
     Route: 058
     Dates: start: 20061121, end: 20070724
  6. INSULIN GLARGINE [Suspect]
     Dates: start: 20080401, end: 20080516
  7. SALBUTAMOL [Concomitant]
     Indication: DRUG USE FOR UNKNOWN INDICATION
     Dosage: OCCASIONAL USE
     Route: 055
  8. FLUTICASONE PROPIONATE [Concomitant]
     Indication: DRUG USE FOR UNKNOWN INDICATION
     Dosage: OCCASIONAL USE
     Route: 055

REACTIONS (2)
  - ECZEMA [None]
  - HYPOGLYCAEMIA [None]
